FAERS Safety Report 20822276 (Version 1)
Quarter: 2022Q2

REPORT INFORMATION
  Report Type: Spontaneous
  Country: US (occurrence: US)
  Receive Date: 20220512
  Receipt Date: 20220512
  Transmission Date: 20220721
  Serious: No
  Sender: FDA-Public Use
  Company Number: US-PFIZER INC-202200360153

PATIENT
  Age: 51 Year
  Sex: Male

DRUGS (1)
  1. RETACRIT [Suspect]
     Active Substance: EPOETIN ALFA-EPBX
     Indication: Rectal cancer
     Dosage: 60000 IU

REACTIONS (2)
  - Blood test abnormal [Unknown]
  - Off label use [Unknown]
